FAERS Safety Report 11659428 (Version 3)
Quarter: 2015Q4

REPORT INFORMATION
  Report Type: Report from Study
  Country: FR (occurrence: FR)
  Receive Date: 20151026
  Receipt Date: 20151105
  Transmission Date: 20160304
  Serious: Yes (Other)
  Sender: FDA-Public Use
  Company Number: FR-BAYER-2015-445794

PATIENT
  Age: 59 Year
  Sex: Male

DRUGS (2)
  1. KOGENATE [Suspect]
     Active Substance: ANTIHEMOPHILIC FACTOR, HUMAN RECOMBINANT
     Indication: HAEMORRHAGE PROPHYLAXIS
     Dosage: 2000 IU, TIW
     Route: 042
     Dates: start: 2011
  2. KOGENATE [Suspect]
     Active Substance: ANTIHEMOPHILIC FACTOR, HUMAN RECOMBINANT
     Indication: FALL
     Dosage: ONE 4000 IU INJECTION/DAY FOR AT LEAST 5 DAYS, TO BE CONTINUED IF NEEDED FOR 2 ADDITIONAL DAYS
     Route: 042
     Dates: start: 201510, end: 20151018

REACTIONS (4)
  - Haemarthrosis [Recovering/Resolving]
  - Joint swelling [Recovering/Resolving]
  - Arthralgia [Recovering/Resolving]
  - Fall [None]

NARRATIVE: CASE EVENT DATE: 20151010
